FAERS Safety Report 24545733 (Version 1)
Quarter: 2024Q4

REPORT INFORMATION
  Report Type: Spontaneous
  Country: IN (occurrence: IN)
  Receive Date: 20241024
  Receipt Date: 20241024
  Transmission Date: 20250114
  Serious: Yes (Other)
  Sender: ADMA BIOLOGICS
  Company Number: IN-ADMA BIOLOGICS INC.-IN-2024ADM000141

PATIENT
  Age: 7 Month

DRUGS (1)
  1. HUMAN IMMUNOGLOBULIN G [Suspect]
     Active Substance: HUMAN IMMUNOGLOBULIN G
     Indication: Kawasaki^s disease
     Dosage: UNK, UNK
     Route: 042

REACTIONS (2)
  - Coronary artery aneurysm [Unknown]
  - Off label use [Unknown]
